FAERS Safety Report 22344447 (Version 1)
Quarter: 2023Q2

REPORT INFORMATION
  Report Type: Spontaneous
  Country: CN (occurrence: CN)
  Receive Date: 20230519
  Receipt Date: 20230519
  Transmission Date: 20230721
  Serious: Yes (Other)
  Sender: FDA-Public Use
  Company Number: CN-009507513-2305CHN003896

PATIENT
  Age: 84 Year
  Sex: Female

DRUGS (5)
  1. CILASTATIN SODIUM\IMIPENEM [Suspect]
     Active Substance: CILASTATIN SODIUM\IMIPENEM
     Indication: Septic shock
     Dosage: 1 GRAM, Q12H
     Route: 041
     Dates: start: 20211121, end: 20211124
  2. CILASTATIN SODIUM\IMIPENEM [Suspect]
     Active Substance: CILASTATIN SODIUM\IMIPENEM
     Indication: Sepsis
  3. PIPERACILLIN\SULBACTAM [Concomitant]
     Active Substance: PIPERACILLIN\SULBACTAM
     Indication: Anti-infective therapy
     Dosage: 3 GRAM, Q12H
     Route: 041
     Dates: start: 20211120, end: 20211121
  4. CYSTEINE;GLYCYRRHIZIC ACID [Concomitant]
     Indication: Prophylaxis
     Dosage: 100 MILLILITER, QD
     Route: 041
     Dates: start: 20211120
  5. HERBALS [Concomitant]
     Active Substance: HERBALS
     Indication: Prophylaxis
     Dosage: 5 GRAM, QID
     Route: 048
     Dates: start: 20211120

REACTIONS (4)
  - Leukopenia [Recovered/Resolved]
  - Immune thrombocytopenia [Recovered/Resolved]
  - Neutropenia [Recovered/Resolved]
  - Incorrect dosage administered [Unknown]

NARRATIVE: CASE EVENT DATE: 20211121
